FAERS Safety Report 17841576 (Version 13)
Quarter: 2022Q1

REPORT INFORMATION
  Report Type: Spontaneous
  Country: US (occurrence: US)
  Receive Date: 20200529
  Receipt Date: 20220222
  Transmission Date: 20220424
  Serious: Yes (Other)
  Sender: FDA-Public Use
  Company Number: US-GLAXOSMITHKLINE-US2020AMR089472

PATIENT
  Age: 53 Year
  Sex: Female

DRUGS (11)
  1. ZEJULA [Suspect]
     Active Substance: NIRAPARIB
     Indication: Ovarian cancer
     Dosage: 200 MG, QD
     Dates: start: 20200403
  2. ZEJULA [Suspect]
     Active Substance: NIRAPARIB
     Dosage: 200 MG, QD
     Route: 048
     Dates: end: 202006
  3. ZEJULA [Suspect]
     Active Substance: NIRAPARIB
     Dosage: 200 MG, QD
     Route: 048
  4. ZEJULA [Suspect]
     Active Substance: NIRAPARIB
     Dosage: 200 MG, QD
  5. ZEJULA [Suspect]
     Active Substance: NIRAPARIB
     Dosage: 200 MG, QD
  6. ZEJULA [Suspect]
     Active Substance: NIRAPARIB
     Dosage: 200 MG, QD
  7. ZEJULA [Suspect]
     Active Substance: NIRAPARIB
     Dosage: 200 MG, QD
  8. ZEJULA [Suspect]
     Active Substance: NIRAPARIB
     Dosage: 200 MG, QD
     Route: 048
  9. ZEJULA [Suspect]
     Active Substance: NIRAPARIB
     Dosage: 200 MG, QD
     Route: 048
  10. ZEJULA [Suspect]
     Active Substance: NIRAPARIB
     Dosage: 200 MG, QD
  11. ZEJULA [Suspect]
     Active Substance: NIRAPARIB
     Dosage: 200 MG, QD
     Route: 048

REACTIONS (23)
  - Haemorrhage urinary tract [Unknown]
  - Urinary retention [Unknown]
  - Insomnia [Recovering/Resolving]
  - Sensitive skin [Unknown]
  - Fatigue [Unknown]
  - Blood test abnormal [Unknown]
  - Coronavirus test positive [Unknown]
  - Illness [Unknown]
  - Micturition urgency [Unknown]
  - Constipation [Unknown]
  - Back pain [Unknown]
  - Paraesthesia [Unknown]
  - Memory impairment [Unknown]
  - Dysuria [Unknown]
  - Renal pain [Unknown]
  - Crying [Unknown]
  - Hernia [Unknown]
  - Cystitis [Unknown]
  - Blood urine present [Unknown]
  - Headache [Unknown]
  - Hypotension [Unknown]
  - Product dose omission issue [Unknown]
  - Product dose omission in error [Unknown]

NARRATIVE: CASE EVENT DATE: 20211101
